FAERS Safety Report 15299877 (Version 2)
Quarter: 2018Q3

REPORT INFORMATION
  Report Type: Spontaneous
  Country: HR (occurrence: HR)
  Receive Date: 20180821
  Receipt Date: 20180921
  Transmission Date: 20181010
  Serious: Yes (Death, Other)
  Sender: FDA-Public Use
  Company Number: HR-BAUSCH-BL-2018-022395

PATIENT
  Age: 51 Year
  Sex: Female

DRUGS (4)
  1. CLINDAMYCIN HYDROCHLORIDE. [Suspect]
     Active Substance: CLINDAMYCIN HYDROCHLORIDE
     Indication: ARTHRITIS BACTERIAL
     Route: 065
  2. CIPROFLOXACIN HYDROCHLORIDE. [Suspect]
     Active Substance: CIPROFLOXACIN HYDROCHLORIDE
     Indication: ARTHRITIS BACTERIAL
     Route: 065
  3. ENOXAPARIN SODIUM. [Suspect]
     Active Substance: ENOXAPARIN SODIUM
     Indication: DEEP VEIN THROMBOSIS
     Dosage: 60 MG, BID, INJECTION
     Route: 058
  4. PREDNISONE. [Suspect]
     Active Substance: PREDNISONE
     Indication: INFLAMMATION
     Route: 065

REACTIONS (8)
  - Loss of consciousness [Fatal]
  - Haemodynamic instability [Fatal]
  - Abdominal wall haematoma [Fatal]
  - Tachycardia [Fatal]
  - Haemoglobin decreased [Fatal]
  - Respiratory arrest [Fatal]
  - Cardiac arrest [Fatal]
  - Shock haemorrhagic [Fatal]
